FAERS Safety Report 4614364-7 (Version None)
Quarter: 2005Q2

REPORT INFORMATION
  Report Type: 
  Country: None (occurrence: None)
  Receive Date: 20050308
  Receipt Date: 20041108
  Transmission Date: 20051028
  Serious: Yes (Other)
  Sender: FDA-Public Use
  Company Number: 2004UW22986

PATIENT
  Sex: Male

DRUGS (2)
  1. CRESTOR [Suspect]
  2. ALCOHOL [Suspect]
     Dosage: 3-4 DRINKS
     Dates: start: 20041105

REACTIONS (1)
  - ILL-DEFINED DISORDER [None]
